FAERS Safety Report 7564421-0 (Version None)
Quarter: 2011Q2

REPORT INFORMATION
  Report Type: 
  Country: None (occurrence: None)
  Receive Date: 20110622
  Receipt Date: 20110610
  Transmission Date: 20111010
  Serious: Yes (Hospitalization, Other)
  Sender: FDA-Public Use
  Company Number: PHHY2011US37587

PATIENT
  Sex: Male

DRUGS (1)
  1. EXJADE [Suspect]
     Dosage: 1000 MG, BID

REACTIONS (5)
  - PULMONARY HYPERTENSION [None]
  - DYSPNOEA [None]
  - RENAL DISORDER [None]
  - CARDIAC DISORDER [None]
  - SICKLE CELL ANAEMIA [None]
